FAERS Safety Report 25665102 (Version 2)
Quarter: 2025Q4

REPORT INFORMATION
  Report Type: Spontaneous
  Country: CA (occurrence: CA)
  Receive Date: 20250811
  Receipt Date: 20251127
  Transmission Date: 20260117
  Serious: Yes (Other)
  Sender: JOHNSON AND JOHNSON
  Company Number: CA-JNJFOC-20250800895

PATIENT
  Sex: Male

DRUGS (17)
  1. DARUNAVIR [Interacting]
     Active Substance: DARUNAVIR
     Indication: HIV infection
     Route: 048
  2. ATAZANAVIR SULFATE [Interacting]
     Active Substance: ATAZANAVIR SULFATE
     Indication: HIV infection
  3. CYCLOPHOSPHAMIDE [Interacting]
     Active Substance: CYCLOPHOSPHAMIDE
     Indication: Diffuse large B-cell lymphoma
  4. DIDANOSINE [Interacting]
     Active Substance: DIDANOSINE
     Indication: HIV infection
  5. DOXORUBICIN HYDROCHLORIDE [Interacting]
     Active Substance: DOXORUBICIN HYDROCHLORIDE
     Indication: Diffuse large B-cell lymphoma
  6. EFAVIRENZ [Interacting]
     Active Substance: EFAVIRENZ
     Indication: HIV infection
  7. FOSAMPRENAVIR CALCIUM [Interacting]
     Active Substance: FOSAMPRENAVIR CALCIUM
     Indication: HIV infection
  8. INDINAVIR SULFATE [Interacting]
     Active Substance: INDINAVIR SULFATE
     Indication: HIV infection
  9. ISENTRESS [Interacting]
     Active Substance: RALTEGRAVIR POTASSIUM
     Indication: HIV infection
  10. KALETRA [Interacting]
     Active Substance: LOPINAVIR\RITONAVIR
     Indication: HIV infection
  11. NEVIRAPINE [Interacting]
     Active Substance: NEVIRAPINE
     Indication: HIV infection
  12. PREDNISONE [Interacting]
     Active Substance: PREDNISONE
     Indication: Diffuse large B-cell lymphoma
  13. RITONAVIR [Interacting]
     Active Substance: RITONAVIR
     Indication: HIV infection
  14. RITUXIMAB [Interacting]
     Active Substance: RITUXIMAB
     Indication: Diffuse large B-cell lymphoma
  15. STAVUDINE [Interacting]
     Active Substance: STAVUDINE
     Indication: HIV infection
  16. VINCRISTINE SULFATE [Interacting]
     Active Substance: VINCRISTINE SULFATE
     Indication: Diffuse large B-cell lymphoma
  17. ZIDOVUDINE [Interacting]
     Active Substance: ZIDOVUDINE
     Indication: HIV infection

REACTIONS (17)
  - Acute kidney injury [Unknown]
  - Alanine aminotransferase increased [Unknown]
  - Anaemia [Unknown]
  - Aspartate aminotransferase increased [Unknown]
  - Blood bilirubin increased [Unknown]
  - Cerebral ischaemia [Unknown]
  - Cystitis noninfective [Unknown]
  - Drug interaction [Unknown]
  - Febrile neutropenia [Unknown]
  - Haematuria [Unknown]
  - Infection [Unknown]
  - Myalgia [Unknown]
  - Pulmonary embolism [Unknown]
  - Seizure [Unknown]
  - Thrombosis [Unknown]
  - Tumour lysis syndrome [Unknown]
  - Vomiting [Unknown]
